FAERS Safety Report 5173431-2 (Version None)
Quarter: 2006Q4

REPORT INFORMATION
  Report Type: 
  Country: None (occurrence: None)
  Receive Date: 20061208
  Receipt Date: 20061208
  Transmission Date: 20070319
  Serious: Yes (Hospitalization)
  Sender: FDA-Public Use
  Company Number: None

PATIENT
  Sex: Female
  Weight: 40 kg

DRUGS (22)
  1. CETUXIMAB 250 MG/M2 BRISTOL MYERS SQUIBB [Suspect]
     Indication: CERVIX CARCINOMA
     Dosage: 392 WEEKLY IV
     Route: 042
     Dates: start: 20060907
  2. CETUXIMAB 250 MG/M2 BRISTOL MYERS SQUIBB [Suspect]
     Indication: CERVIX CARCINOMA
     Dosage: 392 WEEKLY IV
     Route: 042
     Dates: start: 20060914
  3. CETUXIMAB 250 MG/M2 BRISTOL MYERS SQUIBB [Suspect]
     Indication: CERVIX CARCINOMA
     Dosage: 392 WEEKLY IV
     Route: 042
     Dates: start: 20060921
  4. CETUXIMAB 250 MG/M2 BRISTOL MYERS SQUIBB [Suspect]
     Indication: CERVIX CARCINOMA
     Dosage: 392 WEEKLY IV
     Route: 042
     Dates: start: 20060928
  5. CETUXIMAB 250 MG/M2 BRISTOL MYERS SQUIBB [Suspect]
     Indication: CERVIX CARCINOMA
     Dosage: 380 WEEKLY IV
     Route: 042
     Dates: start: 20061005
  6. CETUXIMAB 250 MG/M2 BRISTOL MYERS SQUIBB [Suspect]
     Indication: CERVIX CARCINOMA
     Dosage: 380 WEEKLY IV
     Route: 042
     Dates: start: 20061012
  7. CETUXIMAB 250 MG/M2 BRISTOL MYERS SQUIBB [Suspect]
     Indication: CERVIX CARCINOMA
     Dosage: 380 WEEKLY IV
     Route: 042
     Dates: start: 20061019
  8. CETUXIMAB 250 MG/M2 BRISTOL MYERS SQUIBB [Suspect]
     Indication: CERVIX CARCINOMA
     Dosage: 380 WEEKLY IV
     Route: 042
     Dates: start: 20061031
  9. OXYCODONE HCL [Concomitant]
  10. GABAPENTIN [Concomitant]
  11. TEMAZEPAM [Concomitant]
  12. METOPROLOL SUCCINATE [Concomitant]
  13. FAMOTIDINE [Concomitant]
  14. DOXYCYCLINE [Concomitant]
  15. PROMETHAZINE HCL [Concomitant]
  16. LORAZEPAM [Concomitant]
  17. GLYCERIN SUPPOSITORY [Concomitant]
  18. SENNA [Concomitant]
  19. POLYETHYLENE GLYCOL [Concomitant]
  20. DIPHENOXYLATE HYDROCHLORIDE WITH ATROPINE SULFATE [Concomitant]
  21. CASTOR OIL/PERU BALSAM/TRYPSIN OINTMENT [Concomitant]
  22. ALUMINUM W/ MAGNESIUM HYDROXIDE/NYSTATIN/DIPHENHYDRAMINE [Concomitant]

REACTIONS (5)
  - ANAEMIA [None]
  - NAUSEA [None]
  - PYURIA [None]
  - URINARY TRACT INFECTION [None]
  - VOMITING [None]
